FAERS Safety Report 21441220 (Version 2)
Quarter: 2022Q4

REPORT INFORMATION
  Report Type: Spontaneous
  Country: FR (occurrence: FR)
  Receive Date: 20221011
  Receipt Date: 20221027
  Transmission Date: 20230113
  Serious: Yes (Life-Threatening, Hospitalization)
  Sender: FDA-Public Use
  Company Number: None

PATIENT
  Age: 57 Year
  Sex: Male
  Weight: 116 kg

DRUGS (7)
  1. DAPTOMYCIN [Suspect]
     Active Substance: DAPTOMYCIN
     Dosage: 1000 MILLIGRAM, QD
     Route: 042
     Dates: start: 20220321, end: 20220327
  2. DAPTOMYCIN [Concomitant]
     Active Substance: DAPTOMYCIN
     Indication: Device related infection
     Dosage: 1000 MILLIGRAM, QD
     Route: 042
     Dates: start: 20220316, end: 20220319
  3. DAPTOMYCIN [Concomitant]
     Active Substance: DAPTOMYCIN
     Indication: Antibiotic therapy
  4. PIPERACILLIN SODIUM\TAZOBACTAM SODIUM [Concomitant]
     Active Substance: PIPERACILLIN SODIUM\TAZOBACTAM SODIUM
     Indication: Device related infection
     Dosage: 1000 MILLIGRAM, QD
     Dates: start: 20220316, end: 20220319
  5. PIPERACILLIN SODIUM\TAZOBACTAM SODIUM [Concomitant]
     Active Substance: PIPERACILLIN SODIUM\TAZOBACTAM SODIUM
     Indication: Antibiotic therapy
  6. LEVOFLOXACIN [Concomitant]
     Active Substance: LEVOFLOXACIN
     Indication: Staphylococcal infection
     Dosage: UNK
     Dates: start: 20220319, end: 20220401
  7. RIFAMPIN [Concomitant]
     Active Substance: RIFAMPIN
     Indication: Staphylococcal infection
     Dosage: UNK
     Dates: start: 20220319, end: 20220321

REACTIONS (2)
  - Rhabdomyolysis [Recovered/Resolved]
  - Acute kidney injury [Recovered/Resolved]

NARRATIVE: CASE EVENT DATE: 20220327
